FAERS Safety Report 5981326-7 (Version None)
Quarter: 2008Q4

REPORT INFORMATION
  Report Type: 
  Country: None (occurrence: None)
  Receive Date: 20081205
  Receipt Date: 20080221
  Transmission Date: 20090506
  Serious: No
  Sender: FDA-Public Use
  Company Number: US-AMGEN-KDL266564

PATIENT
  Sex: Male

DRUGS (2)
  1. ENBREL [Suspect]
     Indication: PSORIASIS
     Route: 058
     Dates: start: 20080204
  2. ZOLOFT [Suspect]
     Dates: start: 20080211

REACTIONS (4)
  - NAUSEA [None]
  - OROPHARYNGEAL PAIN [None]
  - PNEUMONITIS [None]
  - RASH MACULAR [None]
